FAERS Safety Report 6094988-3 (Version None)
Quarter: 2009Q1

REPORT INFORMATION
  Report Type: 
  Country: None (occurrence: None)
  Receive Date: 20090227
  Receipt Date: 20090216
  Transmission Date: 20090719
  Serious: Yes (Other)
  Sender: FDA-Public Use
  Company Number: US-ELI_LILLY_AND_COMPANY-US200808003590

PATIENT
  Sex: Female
  Weight: 74.376 kg

DRUGS (2)
  1. FORTEO [Suspect]
     Indication: SPINAL COMPRESSION FRACTURE
     Dosage: 20 UG, DAILY (1/D)
     Dates: start: 20080401
  2. CALCIUM [Concomitant]
     Indication: SUPPLEMENTATION THERAPY

REACTIONS (1)
  - BREAST CANCER [None]
